FAERS Safety Report 7553775-7 (Version None)
Quarter: 2011Q2

REPORT INFORMATION
  Report Type: 
  Country: None (occurrence: None)
  Receive Date: 20110617
  Receipt Date: 20110602
  Transmission Date: 20111010
  Serious: Yes (Hospitalization)
  Sender: FDA-Public Use
  Company Number: US-JNJFOC-20110309473

PATIENT
  Sex: Female
  Weight: 57.38 kg

DRUGS (11)
  1. REMICADE [Suspect]
     Indication: ARTHRITIS
     Dosage: Q6-8 WEEKS
     Route: 042
     Dates: start: 20031201
  2. REMICADE [Suspect]
     Indication: CROHN'S DISEASE
     Dosage: Q6-8 WEEKS
     Route: 042
     Dates: start: 20031201
  3. ASACOL [Concomitant]
     Indication: CROHN'S DISEASE
     Dosage: INITIATED BEFORE 2003
  4. MARINOL [Concomitant]
  5. METHOTREXATE [Concomitant]
  6. PRILOSEC [Concomitant]
  7. ATENOLOL [Concomitant]
     Indication: HYPERTENSION
  8. TYLENOL W/ CODEINE NO. 3 [Concomitant]
     Indication: ABDOMINAL PAIN
     Dates: start: 20060106
  9. PREDNISONE [Concomitant]
     Indication: CONDITION AGGRAVATED
     Dosage: INITIATED PRIOR TO INFLIXIMAB; USED FOR FLARES THROUGH THE YEARS
  10. METHOTREXATE [Concomitant]
     Indication: CROHN'S DISEASE
  11. XANAX [Concomitant]
     Indication: NERVOUSNESS

REACTIONS (1)
  - NON-HODGKIN'S LYMPHOMA [None]
